FAERS Safety Report 6390301-2 (Version None)
Quarter: 2009Q4

REPORT INFORMATION
  Report Type: 
  Country: None (occurrence: None)
  Receive Date: 20091006
  Receipt Date: 20090928
  Transmission Date: 20100525
  Serious: No
  Sender: FDA-Public Use
  Company Number: US-JNJFOC-20090908530

PATIENT
  Sex: Male
  Weight: 117.94 kg

DRUGS (4)
  1. DURAGESIC-100 [Suspect]
     Dosage: 2 PATCHES OF 100 UG/HR AND 1 PATCH OF 75 UG/HR TO MAKE A TOTAL DOSE OF 275 UG/HR
     Route: 062
  2. DURAGESIC-100 [Suspect]
     Indication: PAIN
     Dosage: 2 PATCHES OF 100 UG/HR AND 1 PATCH OF 75 UG/HR TO MAKE A TOTAL DOSE OF 275 UG/HR
     Route: 062
  3. OXYCODONE [Concomitant]
     Indication: PAIN
     Dosage: 2-3 PER DAY AS NEEDED
     Route: 048
  4. PROPYL-THIOURACIL [Concomitant]
     Indication: THYROID DISORDER
     Route: 048

REACTIONS (7)
  - DRUG PRESCRIBING ERROR [None]
  - FEELING ABNORMAL [None]
  - HEADACHE [None]
  - INAPPROPRIATE SCHEDULE OF DRUG ADMINISTRATION [None]
  - INCORRECT DRUG ADMINISTRATION DURATION [None]
  - PRODUCT QUALITY ISSUE [None]
  - WITHDRAWAL SYNDROME [None]
